FAERS Safety Report 7748777-1 (Version None)
Quarter: 2011Q3

REPORT INFORMATION
  Report Type: 
  Country: None (occurrence: None)
  Receive Date: 20110913
  Receipt Date: 20110913
  Transmission Date: 20111222
  Serious: Yes (Life-Threatening, Hospitalization)
  Sender: FDA-Public Use
  Company Number: None

PATIENT
  Age: 50 Year
  Sex: Female
  Weight: 99.1 kg

DRUGS (3)
  1. PERCOCET [Suspect]
     Indication: INTERVERTEBRAL DISC PROTRUSION
     Dosage: PERCOCET 10/325 X 2 BID PO
     Route: 048
     Dates: start: 20100523
  2. PERCOCET [Suspect]
     Indication: BACK PAIN
     Dosage: PERCOCET 10/325 X 2 BID PO
     Route: 048
     Dates: start: 20100523
  3. KLONOPIN [Suspect]
     Indication: ARTHRALGIA
     Dosage: KLONOPIN 1 MG QHS PO
     Route: 048

REACTIONS (5)
  - UNRESPONSIVE TO STIMULI [None]
  - SOMNOLENCE [None]
  - MENTAL STATUS CHANGES [None]
  - CYANOSIS [None]
  - ASPIRATION [None]
